FAERS Safety Report 16570785 (Version 1)
Quarter: 2019Q3

REPORT INFORMATION
  Report Type: Spontaneous
  Country: US (occurrence: US)
  Receive Date: 20190712
  Receipt Date: 20190712
  Transmission Date: 20191004
  Serious: Yes (Hospitalization)
  Sender: FDA-Public Use
  Company Number: None

PATIENT
  Age: 54 Year
  Sex: Female

DRUGS (4)
  1. ENBREL [Suspect]
     Active Substance: ETANERCEPT
     Indication: RHEUMATOID ARTHRITIS
     Dosage: ?          OTHER FREQUENCY:ONCE PER WEEK;?
     Route: 058
     Dates: start: 20190606
  2. N/A [Concomitant]
     Active Substance: UNSPECIFIED INGREDIENT
  3. N/A [Concomitant]
     Active Substance: UNSPECIFIED INGREDIENT
  4. N/A [Concomitant]
     Active Substance: UNSPECIFIED INGREDIENT

REACTIONS (1)
  - Appendicectomy [None]
